FAERS Safety Report 9236470 (Version 2)
Quarter: 2014Q1

REPORT INFORMATION
  Report Type: Spontaneous
  Country: FR (occurrence: FR)
  Receive Date: 20130417
  Receipt Date: 20140129
  Transmission Date: 20141002
  Serious: Yes (Hospitalization)
  Sender: FDA-Public Use
  Company Number: FR-ASTRAZENECA-2013SE23185

PATIENT
  Age: 15575 Day
  Sex: Male

DRUGS (13)
  1. MOPRAL [Suspect]
     Indication: DYSPEPSIA
     Route: 048
     Dates: start: 201212, end: 20130228
  2. LIBRAX [Concomitant]
     Indication: DYSPEPSIA
     Dates: start: 201212
  3. MYFORTIC [Concomitant]
     Route: 048
  4. MYFORTIC [Concomitant]
     Route: 048
  5. XANAX [Concomitant]
  6. TEMERIT [Concomitant]
  7. CORTANCYL [Concomitant]
  8. IMODIUM [Concomitant]
  9. OROCAL D3 [Concomitant]
  10. NEORAL [Concomitant]
     Route: 048
  11. NEORAL [Concomitant]
     Route: 048
     Dates: start: 20091208
  12. PROGRAF [Concomitant]
  13. PROGRAF [Concomitant]

REACTIONS (2)
  - Renal failure acute [Not Recovered/Not Resolved]
  - Tubulointerstitial nephritis [Not Recovered/Not Resolved]
